FAERS Safety Report 5503443-8 (Version None)
Quarter: 2007Q4

REPORT INFORMATION
  Report Type: 
  Country: None (occurrence: None)
  Receive Date: 20071031
  Receipt Date: 20071024
  Transmission Date: 20080405
  Serious: Yes (Hospitalization)
  Sender: FDA-Public Use
  Company Number: US-ELI_LILLY_AND_COMPANY-US200710002141

PATIENT
  Age: 12 Year
  Sex: Male
  Weight: 63.492 kg

DRUGS (3)
  1. STRATTERA [Suspect]
     Indication: ATTENTION DEFICIT/HYPERACTIVITY DISORDER
     Dosage: 58 MG, UNK
  2. STRATTERA [Suspect]
     Dosage: 40 MG, UNK
  3. STRATTERA [Suspect]
     Dosage: 60 MG, UNK

REACTIONS (5)
  - ANXIETY [None]
  - AUTISM SPECTRUM DISORDER [None]
  - DELUSION [None]
  - OBSESSIVE-COMPULSIVE DISORDER [None]
  - PARANOIA [None]
